FAERS Safety Report 10209741 (Version 1)
Quarter: 2014Q2

REPORT INFORMATION
  Report Type: Spontaneous
  Country: US (occurrence: US)
  Receive Date: 20140602
  Receipt Date: 20140602
  Transmission Date: 20141212
  Serious: Yes (Hospitalization, Other)
  Sender: FDA-Public Use
  Company Number: US-AMGEN INC.-USASP2014040226

PATIENT
  Age: 47 Year
  Sex: Female

DRUGS (2)
  1. ENBREL [Suspect]
     Indication: PRODUCT USED FOR UNKNOWN INDICATION
     Dosage: UNK
     Route: 065
     Dates: start: 20120410, end: 201403
  2. METHOTREXATE [Suspect]
     Indication: PRODUCT USED FOR UNKNOWN INDICATION
     Dosage: UNK
     Route: 065

REACTIONS (16)
  - Aphasia [Recovered/Resolved]
  - Eyelid ptosis [Not Recovered/Not Resolved]
  - Activities of daily living impaired [Not Recovered/Not Resolved]
  - Dysarthria [Recovered/Resolved]
  - VIIth nerve paralysis [Not Recovered/Not Resolved]
  - Eye disorder [Not Recovered/Not Resolved]
  - Diabetic ulcer [Recovered/Resolved]
  - Hepatic enzyme increased [Not Recovered/Not Resolved]
  - Malaise [Not Recovered/Not Resolved]
  - Local swelling [Recovered/Resolved]
  - Fluid retention [Recovered/Resolved]
  - Abdominal discomfort [Recovered/Resolved]
  - Inflammation [Unknown]
  - Alopecia [Not Recovered/Not Resolved]
  - Yellow skin [Not Recovered/Not Resolved]
  - Skin discolouration [Not Recovered/Not Resolved]
